FAERS Safety Report 4778059-1 (Version None)
Quarter: 2005Q3

REPORT INFORMATION
  Report Type: 
  Country: None (occurrence: None)
  Receive Date: 20050922
  Receipt Date: 20050922
  Transmission Date: 20060218
  Serious: Yes (Other)
  Sender: FDA-Public Use
  Company Number: None

PATIENT
  Age: 58 Year
  Sex: Male

DRUGS (1)
  1. MUCINEX [Suspect]
     Indication: BRONCHITIS
     Dosage: 1 OR 2 BID P.O.
     Route: 048
     Dates: start: 20050801, end: 20050901

REACTIONS (3)
  - CHOKING [None]
  - DYSPHAGIA [None]
  - PHARMACEUTICAL PRODUCT COMPLAINT [None]
